FAERS Safety Report 5927322-7 (Version None)
Quarter: 2008Q4

REPORT INFORMATION
  Report Type: 
  Country: None (occurrence: None)
  Receive Date: 20081017
  Receipt Date: 20080417
  Transmission Date: 20090506
  Serious: Yes (Hospitalization)
  Sender: FDA-Public Use
  Company Number: 2008PL000151

PATIENT
  Age: 55 Year
  Sex: Female
  Weight: 30 kg

DRUGS (2)
  1. AZATHIOPRINE [Suspect]
     Indication: AUTOIMMUNE DISORDER
     Dosage: 150 MG; QD
  2. AZATHIOPRINE [Suspect]
     Indication: PANCREATITIS CHRONIC
     Dosage: 150 MG; QD

REACTIONS (6)
  - BLOOD AMYLASE INCREASED [None]
  - LEUKOPENIA [None]
  - METABOLIC DISORDER [None]
  - TRANSAMINASES INCREASED [None]
  - TREATMENT FAILURE [None]
  - WEIGHT DECREASED [None]
